FAERS Safety Report 16245283 (Version 2)
Quarter: 2019Q3

REPORT INFORMATION
  Report Type: Spontaneous
  Country: US (occurrence: US)
  Receive Date: 20190426
  Receipt Date: 20190814
  Transmission Date: 20191004
  Serious: Yes (Hospitalization)
  Sender: FDA-Public Use
  Company Number: US-ASTRAZENECA-2019SE61682

PATIENT
  Sex: Female
  Weight: 45.4 kg

DRUGS (1)
  1. BEVESPI AEROSPHERE [Suspect]
     Active Substance: FORMOTEROL FUMARATE\GLYCOPYRROLATE
     Dosage: 9 MCG / 4.8 2 PUFFS TWICE DAILY
     Route: 055
     Dates: start: 2018

REACTIONS (4)
  - Wrong technique in device usage process [Unknown]
  - Pneumonia [Unknown]
  - Product quality issue [Unknown]
  - Dizziness [Unknown]
